FAERS Safety Report 17388785 (Version 1)
Quarter: 2020Q1

REPORT INFORMATION
  Report Type: Spontaneous
  Country: US (occurrence: US)
  Receive Date: 20200207
  Receipt Date: 20200207
  Transmission Date: 20200409
  Serious: Yes (Other)
  Sender: FDA-Public Use
  Company Number: US-PFIZER INC-2020054452

PATIENT
  Sex: Male

DRUGS (1)
  1. LEVETIRACETAM. [Suspect]
     Active Substance: LEVETIRACETAM
     Dosage: 500 MG, DAILY

REACTIONS (4)
  - Somnolence [Unknown]
  - Bone density decreased [Unknown]
  - Feeling abnormal [Unknown]
  - Blindness [Unknown]
